FAERS Safety Report 11071399 (Version 1)
Quarter: 2015Q2

REPORT INFORMATION
  Report Type: Spontaneous
  Country: BR (occurrence: None)
  Receive Date: 20150424
  Receipt Date: 20150424
  Transmission Date: 20150821
  Serious: Yes (Hospitalization)
  Sender: FDA-Public Use
  Company Number: BR-ZYDUS-007744

PATIENT
  Age: 63 Year
  Sex: Female

DRUGS (4)
  1. METOPROLOL SUCCINATE (METOPROLOL SUCCINATE) [Concomitant]
     Active Substance: METOPROLOL SUCCINATE
  2. ASPIRIN (ASPIRIN) [Concomitant]
     Active Substance: ASPIRIN
  3. SIMVASTATIN (SIMVASTATIN) [Concomitant]
     Active Substance: SIMVASTATIN
  4. CLOPIDOGREL [Suspect]
     Active Substance: CLOPIDOGREL BISULFATE
     Indication: PRODUCT USED FOR UNKNOWN INDICATION
     Dosage: 1.0DAYS

REACTIONS (3)
  - Bone marrow toxicity [None]
  - Diarrhoea [None]
  - Atypical pneumonia [None]
